FAERS Safety Report 6943509-9 (Version None)
Quarter: 2010Q3

REPORT INFORMATION
  Report Type: 
  Country: None (occurrence: None)
  Receive Date: 20100826
  Receipt Date: 20100813
  Transmission Date: 20110219
  Serious: Yes (Hospitalization, Disabling)
  Sender: FDA-Public Use
  Company Number: GB-MYLANLABS-2010S1014774

PATIENT
  Age: 41 Year
  Sex: Male

DRUGS (7)
  1. FUROSEMIDE [Suspect]
     Indication: ATRIAL FIBRILLATION
  2. INDOMETHACIN SODIUM [Suspect]
     Indication: GOUT
  3. RAMIPRIL [Suspect]
     Indication: ATRIAL FIBRILLATION
  4. WARFARIN SODIUM [Concomitant]
     Indication: ATRIAL FIBRILLATION
  5. AMIODARONE [Concomitant]
     Indication: ATRIAL FIBRILLATION
  6. BISOPROLOL [Concomitant]
     Indication: ATRIAL FIBRILLATION
  7. METOLAZONE [Concomitant]
     Indication: BLOOD CREATININE INCREASED
     Dosage: DOSE UNIT:2.5 UNKNOWN

REACTIONS (2)
  - DEAFNESS NEUROSENSORY [None]
  - RENAL FAILURE ACUTE [None]
